FAERS Safety Report 18146646 (Version 2)
Quarter: 2020Q3

REPORT INFORMATION
  Report Type: Report from Study
  Country: IT (occurrence: IT)
  Receive Date: 20200813
  Receipt Date: 20200818
  Transmission Date: 20201103
  Serious: Yes (Hospitalization)
  Sender: FDA-Public Use
  Company Number: IT-PFIZER INC-2020313921

PATIENT
  Age: 44 Year
  Sex: Female

DRUGS (2)
  1. SERTRALINE HCL [Suspect]
     Active Substance: SERTRALINE HYDROCHLORIDE
     Dosage: 1 G
     Route: 048
     Dates: start: 20200630, end: 20200630
  2. OLANZAPINE. [Suspect]
     Active Substance: OLANZAPINE
     Dosage: 50 MG
     Route: 048
     Dates: start: 20200630, end: 20200630

REACTIONS (6)
  - Drug abuse [Recovering/Resolving]
  - Vomiting [Recovering/Resolving]
  - Nausea [Recovering/Resolving]
  - Hypokinesia [Recovering/Resolving]
  - Intentional self-injury [Recovering/Resolving]
  - Bradyphrenia [Recovering/Resolving]

NARRATIVE: CASE EVENT DATE: 20200630
